FAERS Safety Report 9714557 (Version 1)
Quarter: 2013Q4

REPORT INFORMATION
  Report Type: Spontaneous
  Country: JP (occurrence: None)
  Receive Date: 20131125
  Receipt Date: 20131125
  Transmission Date: 20140711
  Serious: Yes (Other)
  Sender: FDA-Public Use
  Company Number: EUS-2013-00721

PATIENT
  Age: 5 Year
  Sex: Male

DRUGS (4)
  1. ASPARAGINASE (UNSPECIFIED) (ASPARAGINASE) [Suspect]
     Indication: B PRECURSOR TYPE ACUTE LEUKAEMIA
     Dosage: 6000 ,6000U/M2 WEEKLY X 4 WEEKS
  2. DEXAMETHASPNE (DEXAMETHASONE) [Concomitant]
  3. VINCRISTINE VINCRISTINE) [Concomitant]
  4. ADRIAMYCIN (DOXORUBICIN) (DOXORUBICIN) [Concomitant]

REACTIONS (4)
  - Pancreatitis acute [None]
  - Posterior reversible encephalopathy syndrome [None]
  - Pleural effusion [None]
  - Ascites [None]
